FAERS Safety Report 18431760 (Version 1)
Quarter: 2020Q4

REPORT INFORMATION
  Report Type: Spontaneous
  Country: US (occurrence: US)
  Receive Date: 20201027
  Receipt Date: 20201027
  Transmission Date: 20210114
  Serious: No
  Sender: FDA-Public Use
  Company Number: US-GLENMARK PHARMACEUTICALS-2020GMK049045

PATIENT

DRUGS (1)
  1. APREPITANT CAPSULES USP [40 MG] [Suspect]
     Active Substance: APREPITANT
     Indication: PRURITUS
     Dosage: 40 MILLIGRAM, BID
     Route: 065

REACTIONS (2)
  - Intercepted product prescribing error [Unknown]
  - Product use in unapproved indication [Unknown]

NARRATIVE: CASE EVENT DATE: 2020
